APPROVED DRUG PRODUCT: PRAMIPEXOLE DIHYDROCHLORIDE
Active Ingredient: PRAMIPEXOLE DIHYDROCHLORIDE
Strength: 0.5MG
Dosage Form/Route: TABLET;ORAL
Application: A090865 | Product #003 | TE Code: AB
Applicant: TORRENT PHARMACEUTICALS LTD
Approved: Oct 8, 2010 | RLD: No | RS: No | Type: RX